FAERS Safety Report 12929936 (Version 1)
Quarter: 2016Q4

REPORT INFORMATION
  Report Type: Spontaneous
  Country: US (occurrence: US)
  Receive Date: 20161110
  Receipt Date: 20161110
  Transmission Date: 20170207
  Serious: Yes (Disabling)
  Sender: FDA-Public Use
  Company Number: None

PATIENT
  Age: 30 Year
  Sex: Female
  Weight: 57.6 kg

DRUGS (3)
  1. DULOXETINE HCL DR 60 MG CAP [Suspect]
     Active Substance: DULOXETINE HYDROCHLORIDE
     Indication: DEPRESSION
     Dosage: ?          QUANTITY:1 CAPSULE(S);?
     Route: 048
     Dates: start: 20161003, end: 20161103
  2. DULOXETINE. [Concomitant]
     Active Substance: DULOXETINE
  3. PRENATAL VITAMINS [Concomitant]
     Active Substance: VITAMINS

REACTIONS (7)
  - Depression [None]
  - Impaired work ability [None]
  - Product substitution issue [None]
  - Decreased appetite [None]
  - Panic reaction [None]
  - Asthenia [None]
  - Anxiety [None]

NARRATIVE: CASE EVENT DATE: 20161104
